FAERS Safety Report 5951624-1 (Version None)
Quarter: 2008Q4

REPORT INFORMATION
  Report Type: 
  Country: None (occurrence: None)
  Receive Date: 20081113
  Receipt Date: 20081105
  Transmission Date: 20090506
  Serious: Yes (Hospitalization)
  Sender: FDA-Public Use
  Company Number: PHHY2008AT23387

PATIENT
  Sex: Female

DRUGS (1)
  1. SANDOSTATIN LAR [Suspect]
     Indication: INSULINOMA
     Dosage: 20 MG EVERY 28 DAYS

REACTIONS (2)
  - HYPOGLYCAEMIA [None]
  - SURGERY [None]
